FAERS Safety Report 8789449 (Version 1)
Quarter: 2012Q4

REPORT INFORMATION
  Report Type: Spontaneous
  Country: US (occurrence: None)
  Receive Date: 20120905
  Receipt Date: 20120905
  Transmission Date: 20130627
  Serious: Yes (Hospitalization, Other)
  Sender: FDA-Public Use
  Company Number: 2012P1055022

PATIENT
  Age: 82 Year
  Sex: Male

DRUGS (1)
  1. ACTIPREP PREOPERATIVE SKIN PREPARATION [Suspect]
     Route: 061
     Dates: start: 20120817, end: 20120817

REACTIONS (3)
  - Burns first degree [None]
  - Burns second degree [None]
  - Burns third degree [None]
